FAERS Safety Report 5492150-6 (Version None)
Quarter: 2007Q4

REPORT INFORMATION
  Report Type: 
  Country: None (occurrence: None)
  Receive Date: 20071018
  Receipt Date: 20071009
  Transmission Date: 20080405
  Serious: Yes (Death, Hospitalization)
  Sender: FDA-Public Use
  Company Number: 2007US001689

PATIENT
  Age: 56 Year
  Sex: Male

DRUGS (13)
  1. PROGRAF [Suspect]
     Indication: LIVER TRANSPLANT REJECTION
     Dosage: 8 MG, UID/QD, ORAL; 11 MG,  UID/QD, ORAL
     Route: 048
     Dates: start: 20070518
  2. PROGRAF [Suspect]
     Indication: LIVER TRANSPLANT REJECTION
     Dosage: 8 MG, UID/QD, ORAL; 11 MG,  UID/QD, ORAL
     Route: 048
     Dates: start: 20070627
  3. MYCOPHENOLATE MOFETIL [Suspect]
     Indication: LIVER TRANSPLANT REJECTION
     Dosage: 1000 MG, BID, ORAL
     Route: 048
     Dates: start: 20070627
  4. PREDNISONE [Suspect]
     Indication: LIVER TRANSPLANT REJECTION
     Dosage: 10 MG, UID/QD, ORAL; 5 MG, BID, ORAL
     Route: 048
     Dates: start: 20070518
  5. PREDNISONE [Suspect]
     Indication: LIVER TRANSPLANT REJECTION
     Dosage: 10 MG, UID/QD, ORAL; 5 MG, BID, ORAL
     Route: 048
     Dates: start: 20070627
  6. CARDIZEM [Concomitant]
  7. NYSTATIN [Concomitant]
  8. VALCYTE [Concomitant]
  9. LASIX [Concomitant]
  10. ASPIRIN [Concomitant]
  11. NEXIUM [Concomitant]
  12. SEPTRA [Concomitant]
  13. URSODIOL (URSODEOXYCHOLIC ACID) [Concomitant]

REACTIONS (3)
  - DISEASE RECURRENCE [None]
  - HEPATITIS C [None]
  - SEPSIS [None]
